FAERS Safety Report 8558968-8 (Version None)
Quarter: 2012Q3

REPORT INFORMATION
  Report Type: 
  Country: None (occurrence: None)
  Receive Date: 20120802
  Receipt Date: 20120724
  Transmission Date: 20120928
  Serious: Yes (Other)
  Sender: FDA-Public Use
  Company Number: US-ASTRAZENECA-2011SE41513

PATIENT
  Age: 21228 Day
  Sex: Female

DRUGS (34)
  1. PRILOSEC [Suspect]
     Indication: GASTROOESOPHAGEAL REFLUX DISEASE
     Route: 065
     Dates: start: 19950101, end: 20100101
  2. RISPERDAL [Concomitant]
     Dates: start: 20060308
  3. METHYLPREDNISOLONE [Concomitant]
     Dates: start: 20060216
  4. LOMOTIL [Concomitant]
     Dosage: 2.5-0.25 MG
     Dates: start: 20060210
  5. CELEBREX [Concomitant]
     Dosage: WITH FOOD OR MILK
     Dates: start: 20060920
  6. PREDNISONE [Concomitant]
     Dates: start: 20060313
  7. NADOLOL [Concomitant]
     Dates: start: 20060223
  8. BIAXIN XL [Concomitant]
     Dates: start: 20060220
  9. IMITREX [Concomitant]
     Indication: HEADACHE
     Dosage: 50 MG TABLET TAKE ONE TABLET AT ONSET OF HEADACHE AND REPEAT IN TWO HOURS IF NEEDED
     Dates: start: 20070526
  10. DIFLUCAN [Concomitant]
     Dates: start: 20060208
  11. NEXIUM [Suspect]
     Route: 048
     Dates: start: 20070526
  12. CEPHALEXIN [Concomitant]
     Dates: start: 20060315
  13. VICODIN [Concomitant]
     Dosage: 5MG-500MG
     Dates: start: 20060220
  14. TEQUIN [Concomitant]
     Dates: start: 20060227
  15. NEXIUM [Suspect]
     Indication: GASTROOESOPHAGEAL REFLUX DISEASE
     Route: 048
     Dates: start: 19950101, end: 20100101
  16. ZYRTEC [Concomitant]
     Dates: start: 20060220
  17. METHOCARBAMOL [Concomitant]
     Dates: start: 20060216
  18. METHOCARBAMOL [Concomitant]
     Dates: start: 20070531
  19. CLONAZEPAM [Concomitant]
     Dates: start: 20060208
  20. CLONAZEPAM [Concomitant]
     Dates: start: 20070613
  21. CELEBREX [Concomitant]
     Dates: start: 20060201
  22. BUT/ASA/CAFF [Concomitant]
     Dosage: TAKE ONE CAPSULE EVERY SIX HOURS AS NEEDED
     Dates: start: 20070521
  23. NEXIUM [Suspect]
     Route: 048
     Dates: start: 20061106
  24. VICODIN [Concomitant]
     Dosage: 10 MG-650 MG
     Dates: start: 20060203
  25. OMACOR [Concomitant]
     Dates: start: 20060223
  26. LYRICA [Concomitant]
     Dates: start: 20070618
  27. NEXIUM [Suspect]
     Route: 048
     Dates: start: 20060207
  28. CEPHALEXIN [Concomitant]
     Dates: start: 20070529
  29. NADOLOL [Concomitant]
     Dates: start: 20060920
  30. FIORICET [Concomitant]
     Dosage: 325-40-50
     Dates: start: 20060220
  31. FIORICET [Concomitant]
     Dosage: TAKE ONE TABLET 4 TIMES DAILY AS NEEDED
     Dates: start: 20060911
  32. PREDNISONE [Concomitant]
     Dosage: WITH FOOD OR MILK
     Dates: start: 20061002
  33. AMITRIPTYLINE HCL [Concomitant]
     Dates: start: 20060308
  34. NORCO [Concomitant]
     Dosage: 7.5-325 MG TAKE ONE TABLET EVERY SIX HOURS
     Dates: start: 20070531

REACTIONS (6)
  - OSTEOPOROSIS [None]
  - PAIN IN EXTREMITY [None]
  - PAIN [None]
  - FOOT FRACTURE [None]
  - OSTEOPENIA [None]
  - MENTAL DISORDER [None]
